FAERS Safety Report 9946943 (Version 1)
Quarter: 2014Q1

REPORT INFORMATION
  Report Type: Report from Study
  Country: US (occurrence: US)
  Receive Date: 20140303
  Receipt Date: 20140303
  Transmission Date: 20141002
  Serious: No
  Sender: FDA-Public Use
  Company Number: US-ABBVIE-13P-163-1064119-00

PATIENT
  Age: 43 Year
  Sex: Female
  Weight: 81 kg

DRUGS (4)
  1. HUMIRA [Suspect]
     Indication: PSORIASIS
     Dates: start: 20130301
  2. HUMIRA [Suspect]
     Indication: PSORIATIC ARTHROPATHY
  3. LEVOTHYROXINE [Concomitant]
     Indication: PRODUCT USED FOR UNKNOWN INDICATION
  4. METHOTREXATE [Concomitant]
     Indication: PRODUCT USED FOR UNKNOWN INDICATION

REACTIONS (2)
  - Joint injury [Not Recovered/Not Resolved]
  - Musculoskeletal pain [Not Recovered/Not Resolved]
